FAERS Safety Report 17126958 (Version 1)
Quarter: 2019Q4

REPORT INFORMATION
  Report Type: Spontaneous
  Country: FR (occurrence: FR)
  Receive Date: 20191209
  Receipt Date: 20191209
  Transmission Date: 20200122
  Serious: Yes (Hospitalization)
  Sender: FDA-Public Use
  Company Number: FR-TEVA-2019-FR-1147627

PATIENT
  Age: 87 Year
  Sex: Male
  Weight: 61 kg

DRUGS (10)
  1. TRAMADOL BASE [Suspect]
     Active Substance: TRAMADOL
     Indication: PAIN
     Dosage: ON DEMAND
     Route: 048
     Dates: start: 20191007
  2. DOLIPRANE [Suspect]
     Active Substance: ACETAMINOPHEN
     Indication: PAIN
     Dosage: NON RENSEIGN?E
     Route: 048
     Dates: start: 20191010
  3. FUROSEMIDE. [Concomitant]
     Active Substance: FUROSEMIDE
     Dosage: NON RENSEIGN?E
     Route: 048
     Dates: start: 20191008, end: 20191021
  4. AMOXICILLINE BASE [Suspect]
     Active Substance: AMOXICILLIN
     Indication: INFECTION
     Dosage: 6G
     Route: 048
     Dates: start: 20191018
  5. CEFOTAXIME [Suspect]
     Active Substance: CEFOTAXIME SODIUM
     Indication: INFECTION
     Dosage: 4 G
     Route: 042
     Dates: start: 20191018, end: 20191023
  6. CEFTRIAXONE MYLAN [Suspect]
     Active Substance: CEFTRIAXONE
     Indication: INFECTION
     Dosage: UNINFORMED
     Route: 042
     Dates: start: 20191023
  7. ZOPHREN [Suspect]
     Active Substance: ONDANSETRON
     Indication: VOMITING
     Dosage: ON DEMAND
     Dates: start: 20191007
  8. AUGMENTIN [Suspect]
     Active Substance: AMOXICILLIN\CLAVULANATE POTASSIUM
     Indication: INFECTION
     Route: 048
     Dates: start: 20191015, end: 20191018
  9. NEFOPAM (CHLORHYDRATE DE) [Suspect]
     Active Substance: NEFOPAM HYDROCHLORIDE
     Indication: PAIN
     Dosage: UNINFORMED
     Route: 048
     Dates: start: 20191010
  10. LOVENOX [Suspect]
     Active Substance: ENOXAPARIN SODIUM
     Indication: THROMBOSIS PROPHYLAXIS
     Dosage: NON RENSEIGN?E
     Route: 058
     Dates: start: 20191007

REACTIONS (1)
  - Cholestasis [Not Recovered/Not Resolved]

NARRATIVE: CASE EVENT DATE: 20191016
